FAERS Safety Report 6340917-4 (Version None)
Quarter: 2009Q3

REPORT INFORMATION
  Report Type: 
  Country: None (occurrence: None)
  Receive Date: 20090904
  Receipt Date: 20090828
  Transmission Date: 20100115
  Serious: Yes (Hospitalization)
  Sender: FDA-Public Use
  Company Number: ZA-AVENTIS-200915204EU

PATIENT
  Age: 60 Year
  Sex: Male
  Weight: 91 kg

DRUGS (8)
  1. LASIX [Suspect]
     Dosage: DOSE: UNK
     Dates: start: 20090520
  2. ENALAPRIL MALEATE [Suspect]
     Dosage: DOSE: UNK
     Dates: start: 20090520
  3. PURICOS [Suspect]
     Dosage: DOSE: UNK
     Dates: start: 20090520, end: 20090628
  4. CORDARONE [Suspect]
     Dosage: DOSE: UNK
     Dates: start: 20090520, end: 20090628
  5. ADCO-BISOCOR [Suspect]
     Dosage: DOSE: UNK
     Dates: start: 20090520
  6. WARFARIN SODIUM [Concomitant]
     Indication: PROPHYLAXIS
     Dosage: DOSE: ORAL INR-ADJUSTED WARFARIN OR PLACEBO WARFARIN
     Route: 048
     Dates: start: 20090622, end: 20090622
  7. LANOXIN [Concomitant]
     Dosage: DOSE: UNK
     Dates: start: 20090520
  8. SLOW-K [Concomitant]
     Dosage: DOSE: UNK
     Dates: start: 20090520, end: 20090628

REACTIONS (1)
  - DRUG RASH WITH EOSINOPHILIA AND SYSTEMIC SYMPTOMS [None]
